FAERS Safety Report 17069081 (Version 3)
Quarter: 2019Q4

REPORT INFORMATION
  Report Type: Report from Study
  Country: None (occurrence: US)
  Receive Date: 20191124
  Receipt Date: 20191206
  Transmission Date: 20200122
  Serious: Yes (Death)
  Sender: FDA-Public Use
  Company Number: US-ABBVIE-19K-163-3010714-00

PATIENT
  Age: 69 Year
  Sex: Female

DRUGS (2)
  1. VENCLEXTA [Suspect]
     Active Substance: VENETOCLAX
     Dosage: DAY 1-7: 20 MG BY MOUTH DAY 8-14: 50 MG ?DAY 15-21: 100 MG, DAY 22-28: 200 MG
     Route: 048
     Dates: start: 20190529, end: 2019
  2. VENCLEXTA [Suspect]
     Active Substance: VENETOCLAX
     Indication: ACUTE MYELOID LEUKAEMIA RECURRENT
     Dosage: TAKE 2 TABLETS BY MOUTH 5 TIMES WEEKLY
     Route: 048
     Dates: start: 20190509, end: 201905

REACTIONS (3)
  - Bone neoplasm [Fatal]
  - Acute myeloid leukaemia recurrent [Fatal]
  - Off label use [Unknown]

NARRATIVE: CASE EVENT DATE: 2019
